FAERS Safety Report 17319726 (Version 2)
Quarter: 2020Q1

REPORT INFORMATION
  Report Type: Report from Study
  Country: CN (occurrence: CN)
  Receive Date: 20200125
  Receipt Date: 20200311
  Transmission Date: 20200409
  Serious: Yes (Life-Threatening, Hospitalization, Other)
  Sender: FDA-Public Use
  Company Number: CN-ACCORD-170573

PATIENT
  Age: 57 Year
  Sex: Female

DRUGS (11)
  1. TACROLIMUS. [Suspect]
     Active Substance: TACROLIMUS
     Indication: GRAFT VERSUS HOST DISEASE
     Dosage: (0.03 MG/KG/DAY)
  2. CYCLOPHOSPHAMIDE/CYCLOPHOSPHAMIDE MONOHYDRATE [Suspect]
     Active Substance: CYCLOPHOSPHAMIDE
     Indication: GRAFT VERSUS HOST DISEASE
     Dosage: (1.8 G/M2/DAY, DAYS -4 AND -3).
  3. METHYLPREDNISOLONE. [Suspect]
     Active Substance: METHYLPREDNISOLONE
     Indication: GRAFT VERSUS HOST DISEASE
     Dosage: TAPERED OFF
  4. GANCICLOVIR. [Suspect]
     Active Substance: GANCICLOVIR
     Indication: GRAFT VERSUS HOST DISEASE
     Route: 042
     Dates: start: 2018
  5. CYTARABINE/CYTARABINE HYDROCHLORIDE/CYTARABINE OCFOSFATE [Suspect]
     Active Substance: CYTARABINE
     Indication: GRAFT VERSUS HOST DISEASE
     Dosage: (4 G/M2/DAY, DAYS -9 AND -8),
  6. SEMUSTINE [Suspect]
     Active Substance: SEMUSTINE
     Indication: GRAFT VERSUS HOST DISEASE
     Dosage: 250 MG/M2, DAY -10
  7. CICLOSPORIN [Suspect]
     Active Substance: CYCLOSPORINE
     Indication: GRAFT VERSUS HOST DISEASE
     Dosage: 3 MG/KG/DAY (OVER 24 H FROM DAY -10)
  8. ANTITHYMOCYTE IMMUNOGLOBULIN ( [Suspect]
     Active Substance: THYMOCYTE IMMUNE GLOBULIN NOS
     Indication: GRAFT VERSUS HOST DISEASE
     Dosage: IN VIVO AT 2.5 MG/KG ON DAYS -5 AND -2
  9. METHOTREXATE. [Suspect]
     Active Substance: METHOTREXATE
     Indication: GRAFT VERSUS HOST DISEASE
     Dosage: 15 MG/KG/DAY ON DAY +1?AND 10 MG/KG/DAY ON DAYS +3, +6 AND +11.
  10. MYCOPHENOLIC ACID. [Suspect]
     Active Substance: MYCOPHENOLIC ACID
     Indication: GRAFT VERSUS HOST DISEASE
     Dosage: TWICE DAILY FROM DAY -10 TO DAY +30, (TAPERED OFF UNTIL DAY +60.)
     Route: 048
  11. BUSULFAN. [Suspect]
     Active Substance: BUSULFAN
     Indication: GRAFT VERSUS HOST DISEASE
     Dosage: (4 MG/KG/DAY, DAYS -7 TO -5)

REACTIONS (1)
  - Encephalitis cytomegalovirus [Recovering/Resolving]
